FAERS Safety Report 4997937-1 (Version None)
Quarter: 2006Q2

REPORT INFORMATION
  Report Type: 
  Country: None (occurrence: None)
  Receive Date: 20060508
  Receipt Date: 20060426
  Transmission Date: 20061013
  Serious: Yes (Hospitalization, Other)
  Sender: FDA-Public Use
  Company Number: 2006057412

PATIENT
  Age: 56 Year
  Sex: Female

DRUGS (11)
  1. CELEBREX [Suspect]
     Indication: ARTHRITIS
     Dosage: 1200MG/DAY - 1600MG/DAY (400 MG, 3-4 TIMES A DAY)
     Dates: start: 19930101, end: 20040101
  2. CELEBREX [Suspect]
     Indication: OSTEOARTHRITIS
     Dosage: 1200MG/DAY - 1600MG/DAY (400 MG, 3-4 TIMES A DAY)
     Dates: start: 19930101, end: 20040101
  3. ADVIL [Concomitant]
  4. MOTRIN [Concomitant]
  5. ASPIRIN [Concomitant]
  6. BUFFERIN [Concomitant]
  7. ASCRIPTIN (ACETYLSALICYLIC ACID, ALUMINIUM HYDROXIDE, MAGNESIUM HYDROX [Concomitant]
  8. ECOTRIN (ACETYLSALICYLIC ACID) [Concomitant]
  9. MORPHINE [Concomitant]
  10. ACETAMINOPHEN [Concomitant]
  11. VIOXX [Concomitant]

REACTIONS (24)
  - ALCOHOL USE [None]
  - ANGINA PECTORIS [None]
  - ATRIAL FIBRILLATION [None]
  - ATRIOVENTRICULAR BLOCK [None]
  - BLOOD CHOLESTEROL INCREASED [None]
  - BLOOD TRIGLYCERIDES INCREASED [None]
  - CARDIAC DISORDER [None]
  - CARDIOMEGALY [None]
  - CARDIOMYOPATHY [None]
  - CEREBROVASCULAR ACCIDENT [None]
  - CHEST PAIN [None]
  - DIFFICULTY IN WALKING [None]
  - GASTROINTESTINAL DISORDER [None]
  - GASTROINTESTINAL INFECTION [None]
  - GASTROINTESTINAL ULCER [None]
  - GASTROOESOPHAGEAL REFLUX DISEASE [None]
  - GOUT [None]
  - HYPERTENSION [None]
  - INJURY [None]
  - OSTEOARTHRITIS [None]
  - RHEUMATOID ARTHRITIS [None]
  - THYROID DISORDER [None]
  - TRANSIENT ISCHAEMIC ATTACK [None]
  - URINARY TRACT INFECTION [None]
